FAERS Safety Report 8587160-6 (Version None)
Quarter: 2012Q3

REPORT INFORMATION
  Report Type: 
  Country: None (occurrence: None)
  Receive Date: 20120810
  Receipt Date: 20120807
  Transmission Date: 20120928
  Serious: No
  Sender: FDA-Public Use
  Company Number: US-PFIZER INC-2012192323

PATIENT
  Age: 8 Year
  Sex: Male
  Weight: 22.676 kg

DRUGS (6)
  1. VITAMIN D [Concomitant]
     Indication: MEDICAL DIET
     Dosage: UNK
  2. GLUTATHIONE [Concomitant]
     Dosage: UNK
  3. ZINC [Concomitant]
     Indication: MEDICAL DIET
     Dosage: UNK
  4. CHILDREN'S ADVIL [Suspect]
     Indication: DENTAL DISCOMFORT
     Dosage: 10 ML, UNK
     Route: 048
     Dates: start: 20120806, end: 20120806
  5. PROBIOTICS [Concomitant]
     Indication: MEDICAL DIET
     Dosage: UNK
  6. LOVAZA [Concomitant]
     Indication: MEDICAL DIET
     Dosage: UNK

REACTIONS (2)
  - NASAL DISCOMFORT [None]
  - NASOPHARYNGEAL REFLUX [None]
